FAERS Safety Report 9165637 (Version 1)
Quarter: 2013Q1

REPORT INFORMATION
  Report Type: Spontaneous
  Country: US (occurrence: None)
  Receive Date: 20130227
  Receipt Date: 20130227
  Transmission Date: 20140127
  Serious: Yes (Other)
  Sender: FDA-Public Use
  Company Number: CLCY20130031

PATIENT
  Sex: Male

DRUGS (1)
  1. COLCRYS [Suspect]
     Indication: GOUT
     Dates: start: 201210

REACTIONS (4)
  - Eye haemorrhage [None]
  - Injection site haematoma [None]
  - Haemorrhage [None]
  - Fall [None]
